FAERS Safety Report 17438616 (Version 1)
Quarter: 2020Q1

REPORT INFORMATION
  Report Type: Spontaneous
  Country: US (occurrence: US)
  Receive Date: 20200205
  Receipt Date: 20200205
  Transmission Date: 20200409
  Serious: No
  Sender: FDA-Public Use
  Company Number: None

PATIENT
  Age: 36 Year
  Sex: Female
  Weight: 102.97 kg

DRUGS (1)
  1. METRONIDAZOLE 500MG/100ML [Suspect]
     Active Substance: METRONIDAZOLE
     Indication: BACTERAEMIA
     Route: 042
     Dates: start: 20200128, end: 20200203

REACTIONS (1)
  - Product substitution issue [None]

NARRATIVE: CASE EVENT DATE: 20200128
